FAERS Safety Report 24825060 (Version 3)
Quarter: 2025Q3

REPORT INFORMATION
  Report Type: Spontaneous
  Country: CA (occurrence: CA)
  Receive Date: 20250109
  Receipt Date: 20250718
  Transmission Date: 20251021
  Serious: Yes (Other)
  Sender: SANDOZ
  Company Number: CA-SANDOZ-SDZ2025CA001065

PATIENT
  Age: 67 Year
  Sex: Female

DRUGS (1)
  1. ZOLEDRONIC ACID [Suspect]
     Active Substance: ZOLEDRONIC ACID
     Indication: Osteoporosis
     Route: 042

REACTIONS (8)
  - Neoplasm [Unknown]
  - Cholelithiasis [Unknown]
  - Rhinorrhoea [Unknown]
  - Symptom recurrence [Not Recovered/Not Resolved]
  - Toothache [Not Recovered/Not Resolved]
  - Sciatica [Not Recovered/Not Resolved]
  - Cough [Unknown]
  - Influenza like illness [Unknown]
